FAERS Safety Report 7809484-X (Version None)
Quarter: 2011Q4

REPORT INFORMATION
  Report Type: 
  Country: None (occurrence: None)
  Receive Date: 20111012
  Receipt Date: 20110928
  Transmission Date: 20120403
  Serious: Yes (Hospitalization, Other)
  Sender: FDA-Public Use
  Company Number: PHHY2011AU80275

PATIENT
  Sex: Female

DRUGS (2)
  1. GLEEVEC [Suspect]
     Indication: CHRONIC MYELOID LEUKAEMIA
     Dosage: 600 MG, DAILY
     Route: 048
     Dates: start: 20110511, end: 20110520
  2. SPRYCEL [Suspect]

REACTIONS (11)
  - MYOPERICARDITIS [None]
  - TACHYCARDIA [None]
  - FLUID RETENTION [None]
  - EXTRASYSTOLES [None]
  - DYSPNOEA [None]
  - CHEST PAIN [None]
  - PALPITATIONS [None]
  - SYNCOPE [None]
  - DIZZINESS [None]
  - PALLOR [None]
  - ANAEMIA [None]
